FAERS Safety Report 17847792 (Version 1)
Quarter: 2020Q2

REPORT INFORMATION
  Report Type: Report from Study
  Country: US (occurrence: US)
  Receive Date: 20200601
  Receipt Date: 20200601
  Transmission Date: 20200714
  Serious: Yes (Hospitalization, Other)
  Sender: FDA-Public Use
  Company Number: US-BAYER-2020-038399

PATIENT
  Age: 61 Year
  Sex: Male

DRUGS (2)
  1. BLOOD [Concomitant]
     Active Substance: WHOLE BLOOD
     Dosage: UNK
  2. XOFIGO [Suspect]
     Active Substance: RADIUM RA-223 DICHLORIDE
     Indication: PROSTATE CANCER
     Dosage: UNK
     Dates: start: 20191018, end: 20191018

REACTIONS (5)
  - Platelet count decreased [None]
  - Anaemia [None]
  - Full blood count abnormal [None]
  - Haemoglobin decreased [None]
  - White blood cell count decreased [None]
